FAERS Safety Report 7317410-5 (Version None)
Quarter: 2011Q1

REPORT INFORMATION
  Report Type: 
  Country: None (occurrence: None)
  Receive Date: 20110226
  Receipt Date: 20101111
  Transmission Date: 20110831
  Serious: No
  Sender: FDA-Public Use
  Company Number: US-ALLERGAN-1013908US

PATIENT
  Age: 68 Year
  Sex: Female

DRUGS (3)
  1. BOTOX COSMETIC [Suspect]
     Dosage: 50 UNK, UNK
     Dates: start: 20101103, end: 20101103
  2. BOTOX COSMETIC [Suspect]
     Dosage: 18 UNK, UNK
     Route: 030
     Dates: start: 20101025, end: 20101025
  3. BOTOX COSMETIC [Suspect]
     Indication: SKIN WRINKLING
     Dosage: 30 UNITS, SINGLE
     Route: 030
     Dates: start: 20101020, end: 20101020

REACTIONS (2)
  - DRUG INEFFECTIVE [None]
  - CUTIS LAXA [None]
